FAERS Safety Report 4375704-X (Version None)
Quarter: 2004Q2

REPORT INFORMATION
  Report Type: 
  Country: None (occurrence: None)
  Receive Date: 20040607
  Receipt Date: 20040527
  Transmission Date: 20050107
  Serious: Yes (Death)
  Sender: FDA-Public Use
  Company Number: 2004-116142-NL

PATIENT
  Age: 44 Year
  Sex: Male

DRUGS (5)
  1. FONDAPARINUX SODIUM UFH [Suspect]
     Indication: ACUTE CORONARY SYNDROME
     Dates: start: 20040514, end: 20040514
  2. ASPIRIN [Concomitant]
  3. NITRATES [Concomitant]
  4. BETA-BLOCKERS [Concomitant]
  5. STREPTASE [Concomitant]

REACTIONS (6)
  - CARDIOGENIC SHOCK [None]
  - CHEST PAIN [None]
  - CORONARY ARTERY OCCLUSION [None]
  - CORONARY ARTERY THROMBOSIS [None]
  - INFARCTION [None]
  - VENTRICULAR ARRHYTHMIA [None]
